FAERS Safety Report 8376610-6 (Version None)
Quarter: 2012Q2

REPORT INFORMATION
  Report Type: 
  Country: None (occurrence: None)
  Receive Date: 20120522
  Receipt Date: 20120515
  Transmission Date: 20120825
  Serious: No
  Sender: FDA-Public Use
  Company Number: US-PFIZER INC-2012118331

PATIENT
  Sex: Female
  Weight: 62.132 kg

DRUGS (1)
  1. ALAVERT [Suspect]
     Indication: PARANASAL SINUS HYPERSECRETION
     Dosage: 10 MG, 1X/DAY
     Route: 048
     Dates: start: 20120514, end: 20120515

REACTIONS (1)
  - MUSCLE SPASMS [None]
